FAERS Safety Report 21916597 (Version 1)
Quarter: 2023Q1

REPORT INFORMATION
  Report Type: Spontaneous
  Country: US (occurrence: None)
  Receive Date: 20230126
  Receipt Date: 20230126
  Transmission Date: 20230417
  Serious: Yes (Other)
  Sender: FDA-Public Use
  Company Number: None

PATIENT
  Age: 77 Year
  Sex: Male
  Weight: 110.25 kg

DRUGS (6)
  1. LEVOTHYROXINE [Suspect]
     Active Substance: LEVOTHYROXINE
     Indication: Hypothyroidism
     Dosage: OTHER STRENGTH : 25 MCG;?OTHER QUANTITY : 1 TABLET(S);?
     Route: 048
     Dates: start: 20230110, end: 20230117
  2. GABAPENTIN [Concomitant]
     Active Substance: GABAPENTIN
  3. TIZANIDINE HYDROCHLORIDE [Concomitant]
     Active Substance: TIZANIDINE HYDROCHLORIDE
  4. GENERIC ALLEGRA [Concomitant]
  5. LAMISIL GENERIC [Concomitant]
  6. NASACORT [Concomitant]
     Active Substance: TRIAMCINOLONE ACETONIDE

REACTIONS (4)
  - Eye discharge [None]
  - Ocular hyperaemia [None]
  - Multiple allergies [None]
  - Allergic reaction to excipient [None]

NARRATIVE: CASE EVENT DATE: 20230115
